FAERS Safety Report 18695909 (Version 2)
Quarter: 2021Q3

REPORT INFORMATION
  Report Type: Spontaneous
  Country: US (occurrence: US)
  Receive Date: 20210104
  Receipt Date: 20210820
  Transmission Date: 20211014
  Serious: Yes (Other)
  Sender: FDA-Public Use
  Company Number: US-PURDUE-USA-2020-0165991

PATIENT
  Sex: Male

DRUGS (3)
  1. MS CONTIN [Suspect]
     Active Substance: MORPHINE SULFATE
     Indication: PRODUCT USED FOR UNKNOWN INDICATION
     Dosage: UNK
     Route: 048
  2. OXYCODONE HCL TABLETS (RHODES 91?490) [Suspect]
     Active Substance: OXYCODONE HYDROCHLORIDE
     Indication: PRODUCT USED FOR UNKNOWN INDICATION
     Dosage: UNK
     Route: 048
  3. OXYCONTIN [Suspect]
     Active Substance: OXYCODONE HYDROCHLORIDE
     Indication: BACK INJURY
     Dosage: UNK
     Route: 048

REACTIONS (14)
  - Unevaluable event [Unknown]
  - Emotional distress [Unknown]
  - Suicidal ideation [Unknown]
  - Delusion [Unknown]
  - Pain [Unknown]
  - Depression [Unknown]
  - Hallucination [Unknown]
  - Drug dependence [Unknown]
  - Somnolence [Unknown]
  - Anxiety [Unknown]
  - Mental disorder [Unknown]
  - Paranoia [Unknown]
  - Substance use disorder [Unknown]
  - Overdose [Unknown]
